FAERS Safety Report 6664122-7 (Version None)
Quarter: 2010Q2

REPORT INFORMATION
  Report Type: 
  Country: None (occurrence: None)
  Receive Date: 20100401
  Receipt Date: 20100326
  Transmission Date: 20101027
  Serious: Yes (Hospitalization)
  Sender: FDA-Public Use
  Company Number: B0639373A

PATIENT
  Age: 12 Year
  Sex: Female

DRUGS (1)
  1. FLOLAN [Suspect]
     Route: 042

REACTIONS (2)
  - BASEDOW'S DISEASE [None]
  - THYROID FUNCTION TEST ABNORMAL [None]
